FAERS Safety Report 17035867 (Version 3)
Quarter: 2020Q3

REPORT INFORMATION
  Report Type: Spontaneous
  Country: US (occurrence: US)
  Receive Date: 20191115
  Receipt Date: 20200703
  Transmission Date: 20201102
  Serious: No
  Sender: FDA-Public Use
  Company Number: US-SUNOVION-2019SUN004816

PATIENT
  Age: 27 Year
  Sex: Female
  Weight: 61.22 kg

DRUGS (7)
  1. LATUDA [Suspect]
     Active Substance: LURASIDONE HYDROCHLORIDE
     Dosage: 60 MG, QD
     Route: 048
     Dates: start: 201910, end: 2020
  2. LATUDA [Suspect]
     Active Substance: LURASIDONE HYDROCHLORIDE
     Dosage: 40 MG, QD
     Route: 048
     Dates: start: 201703
  3. HYDROXYZINE [Concomitant]
     Active Substance: HYDROXYZINE HYDROCHLORIDE
     Indication: PANIC ATTACK
     Dosage: UNK, AS NECESSARY
     Dates: start: 201910
  4. LATUDA [Suspect]
     Active Substance: LURASIDONE HYDROCHLORIDE
     Dosage: 80 MG, QD
     Route: 048
     Dates: start: 2020, end: 2020
  5. TRAZODONE [Concomitant]
     Active Substance: TRAZODONE HYDROCHLORIDE
     Indication: INSOMNIA
     Dosage: UNK, HS
     Dates: start: 2020
  6. LATUDA [Suspect]
     Active Substance: LURASIDONE HYDROCHLORIDE
     Indication: BIPOLAR DISORDER
     Dosage: 60 MG, QD
     Route: 048
     Dates: start: 2020
  7. LATUDA [Suspect]
     Active Substance: LURASIDONE HYDROCHLORIDE
     Dosage: 40 MG, QD
     Route: 048
     Dates: start: 201803, end: 201910

REACTIONS (15)
  - Product administration error [Unknown]
  - Eating disorder [Unknown]
  - Depression [Not Recovered/Not Resolved]
  - Paranoia [Unknown]
  - Gastrooesophageal reflux disease [Unknown]
  - Discomfort [Unknown]
  - Somnolence [Not Recovered/Not Resolved]
  - Product dose omission issue [Unknown]
  - Anxiety [Not Recovered/Not Resolved]
  - Restlessness [Unknown]
  - Insomnia [Not Recovered/Not Resolved]
  - Panic attack [Not Recovered/Not Resolved]
  - Feeling abnormal [Unknown]
  - Abdominal pain upper [Unknown]
  - Dyskinesia [Not Recovered/Not Resolved]

NARRATIVE: CASE EVENT DATE: 201910
